FAERS Safety Report 16072075 (Version 1)
Quarter: 2019Q1

REPORT INFORMATION
  Report Type: Report from Study
  Country: US (occurrence: US)
  Receive Date: 20190314
  Receipt Date: 20190314
  Transmission Date: 20190418
  Serious: Yes (Other)
  Sender: FDA-Public Use
  Company Number: PHEH2019US010182

PATIENT
  Sex: Female

DRUGS (1)
  1. GILENYA [Suspect]
     Active Substance: FINGOLIMOD HYDROCHLORIDE
     Indication: MULTIPLE SCLEROSIS
     Dosage: 0.5 MG, QD
     Route: 048
     Dates: start: 20181221

REACTIONS (7)
  - Fatigue [Recovering/Resolving]
  - Neck pain [Recovering/Resolving]
  - Musculoskeletal stiffness [Recovering/Resolving]
  - Headache [Recovering/Resolving]
  - Upper respiratory tract infection [Recovering/Resolving]
  - Pain [Recovering/Resolving]
  - Multiple sclerosis relapse [Recovering/Resolving]
